FAERS Safety Report 8735484 (Version 2)
Quarter: 2012Q4

REPORT INFORMATION
  Report Type: Spontaneous
  Country: GB (occurrence: None)
  Receive Date: 20120803
  Receipt Date: 20121001
  Transmission Date: 20130627
  Serious: Yes (Life-Threatening)
  Sender: FDA-Public Use
  Company Number: 1358873

PATIENT
  Age: 52 Year
  Sex: Male
  Weight: 31.68 kg

DRUGS (3)
  1. GENTAMICIN SULFATE [Suspect]
     Indication: SEPSIS
     Dosage: INTRAVENOUS (NOT OTHERWISE SPECIFIED)
     Route: 041
     Dates: start: 20120618
  2. GENTAMICIN SULFATE [Suspect]
     Indication: SEPSIS
     Route: 041
     Dates: start: 20120619
  3. CIPROFLOXACIN [Suspect]
     Indication: SEPSIS
     Route: 048
     Dates: start: 20120620, end: 20120620

REACTIONS (4)
  - Anaphylactic shock [None]
  - Tremor [None]
  - Erythema [None]
  - Local swelling [None]
